FAERS Safety Report 6306953-9 (Version None)
Quarter: 2009Q3

REPORT INFORMATION
  Report Type: 
  Country: None (occurrence: None)
  Receive Date: 20090812
  Receipt Date: 20090805
  Transmission Date: 20100115
  Serious: Yes (Life-Threatening, Hospitalization)
  Sender: FDA-Public Use
  Company Number: LB-SANOFI-SYNTHELABO-A01200907560

PATIENT
  Age: 58 Year
  Sex: Female
  Weight: 53 kg

DRUGS (6)
  1. LEUCOVORIN CALCIUM [Concomitant]
     Indication: COLON CANCER
     Dosage: UNK
     Route: 041
  2. FLUOROURACIL [Concomitant]
     Indication: COLON CANCER
     Dosage: 3600 MG
     Route: 041
     Dates: start: 20081106, end: 20081231
  3. DEPAKINE CR [Concomitant]
  4. ELOXATIN [Suspect]
     Indication: COLON CANCER
     Route: 041
     Dates: start: 20081231, end: 20081231
  5. DEANXIT [Concomitant]
  6. XANAX [Concomitant]

REACTIONS (2)
  - CONVULSION [None]
  - ENCEPHALOPATHY [None]
